FAERS Safety Report 9921872 (Version 2)
Quarter: 2014Q1

REPORT INFORMATION
  Report Type: Report from Study
  Country: TR (occurrence: TR)
  Receive Date: 20140225
  Receipt Date: 20140225
  Transmission Date: 20141002
  Serious: Yes (Hospitalization, Other)
  Sender: FDA-Public Use
  Company Number: TR-BRISTOL-MYERS SQUIBB COMPANY-19896398

PATIENT
  Age: 71 Year
  Sex: Male
  Weight: 55 kg

DRUGS (6)
  1. COUMADIN [Suspect]
     Indication: ATRIAL FIBRILLATION
     Dosage: 1DF= 5MG FOR 5DAYS, 7.5MG FOR THE FOLLOWING 2 DAYS.
     Route: 048
  2. ASPIRIN [Suspect]
     Indication: CORONARY ARTERY DISEASE
  3. CORASPIN [Suspect]
     Indication: ATRIAL FIBRILLATION
  4. INSULIN [Concomitant]
     Indication: DIABETES MELLITUS
  5. BELOC-ZOK [Concomitant]
     Indication: ATRIAL FIBRILLATION
  6. MONOKET [Concomitant]

REACTIONS (4)
  - Renal impairment [Unknown]
  - Blood urea increased [Unknown]
  - Diarrhoea [Unknown]
  - Hyperglycaemia [Unknown]
